FAERS Safety Report 9302369 (Version 2)
Quarter: 2013Q3

REPORT INFORMATION
  Report Type: Spontaneous
  Country: US (occurrence: US)
  Receive Date: 20130522
  Receipt Date: 20130716
  Transmission Date: 20140515
  Serious: Yes (Other)
  Sender: FDA-Public Use
  Company Number: US-BIOGENIDEC-2013BI045466

PATIENT
  Age: 43 Year
  Sex: Male
  Weight: 101 kg

DRUGS (7)
  1. AVONEX [Suspect]
     Indication: RELAPSING-REMITTING MULTIPLE SCLEROSIS
     Route: 030
     Dates: start: 19970609, end: 19990608
  2. AVONEX [Suspect]
     Indication: RELAPSING-REMITTING MULTIPLE SCLEROSIS
     Route: 030
     Dates: start: 20010205, end: 20041004
  3. AVONEX [Suspect]
     Indication: RELAPSING-REMITTING MULTIPLE SCLEROSIS
     Route: 030
     Dates: start: 20090710
  4. AVONEX [Suspect]
     Indication: RELAPSING-REMITTING MULTIPLE SCLEROSIS
     Route: 030
     Dates: start: 20091209, end: 2010
  5. ADVIL [Concomitant]
     Indication: PREMEDICATION
  6. CLARITIN [Concomitant]
     Indication: PREMEDICATION
  7. PREDNISONE [Concomitant]
     Indication: PREMEDICATION

REACTIONS (2)
  - Prostate cancer [Unknown]
  - Hypertension [Unknown]
